FAERS Safety Report 6528827-0 (Version None)
Quarter: 2010Q1

REPORT INFORMATION
  Report Type: 
  Country: None (occurrence: None)
  Receive Date: 20100106
  Receipt Date: 20100104
  Transmission Date: 20100710
  Serious: Yes (Life-Threatening, Hospitalization)
  Sender: FDA-Public Use
  Company Number: US-ELI_LILLY_AND_COMPANY-US201001000164

PATIENT
  Sex: Male
  Weight: 90.703 kg

DRUGS (10)
  1. BYETTA [Suspect]
     Indication: TYPE 2 DIABETES MELLITUS
     Dosage: 5 UG, 2/D
     Route: 058
     Dates: start: 20060101
  2. BYETTA [Suspect]
     Dosage: 10 UG, 2/D
     Route: 058
  3. NOVOLOG MIX 70/30 [Concomitant]
     Dosage: 35 U, UNKNOWN
  4. PEPCID [Concomitant]
     Dosage: 20 MG, DAILY (1/D)
     Route: 048
  5. LABETALOL HCL [Concomitant]
     Dosage: 200 MG, 2/D
     Route: 048
  6. TRICOR [Concomitant]
     Dosage: 48 MG, DAILY (1/D)
     Route: 048
  7. LISINOPRIL [Concomitant]
     Dosage: 40 MG, DAILY (1/D)
     Route: 048
  8. AMLODIPINE BESYLATE [Concomitant]
     Dosage: UNK, UNKNOWN
  9. SIMVASTATIN [Concomitant]
     Dosage: 40 MG, DAILY (1/D)
     Route: 048
  10. HYDROCHLOROTHIAZIDE [Concomitant]
     Dosage: UNK, UNKNOWN

REACTIONS (13)
  - CEREBROVASCULAR ACCIDENT [None]
  - DECREASED APPETITE [None]
  - DYSARTHRIA [None]
  - ENDOTRACHEAL INTUBATION [None]
  - FATIGUE [None]
  - GAIT DISTURBANCE [None]
  - HEADACHE [None]
  - HEMIPARESIS [None]
  - LOSS OF CONSCIOUSNESS [None]
  - MEMORY IMPAIRMENT [None]
  - OFF LABEL USE [None]
  - VISUAL ACUITY REDUCED [None]
  - VOMITING [None]
